FAERS Safety Report 8349630-5 (Version None)
Quarter: 2012Q2

REPORT INFORMATION
  Report Type: 
  Country: None (occurrence: None)
  Receive Date: 20120510
  Receipt Date: 20120502
  Transmission Date: 20120825
  Serious: Yes (Hospitalization)
  Sender: FDA-Public Use
  Company Number: MX-PFIZER INC-2012091585

PATIENT
  Age: 32 Year
  Sex: Female
  Weight: 51 kg

DRUGS (2)
  1. DIANE [Concomitant]
     Indication: POLYCYSTIC OVARIES
     Dosage: 1 DF, 1X/DAY
     Route: 048
     Dates: start: 20111001
  2. TOLTERODINE TARTRATE [Suspect]
     Indication: URINARY INCONTINENCE
     Dosage: UNK
     Route: 048
     Dates: start: 20120229, end: 20120307

REACTIONS (3)
  - BALANCE DISORDER [None]
  - DIZZINESS [None]
  - VERTIGO [None]
